FAERS Safety Report 5933397-1 (Version None)
Quarter: 2008Q4

REPORT INFORMATION
  Report Type: 
  Country: None (occurrence: None)
  Receive Date: 20081023
  Receipt Date: 20081010
  Transmission Date: 20090506
  Serious: Yes (Other)
  Sender: FDA-Public Use
  Company Number: 230562K08USA

PATIENT
  Age: 54 Year
  Sex: Female
  Weight: 48 kg

DRUGS (8)
  1. REBIF [Suspect]
     Indication: MULTIPLE SCLEROSIS
     Dosage: 44 MCG, 3 IN 1 WEEKS, SUBCUTANEOUS
     Route: 058
     Dates: start: 20040803
  2. ACETAMINOPHEN [Concomitant]
  3. SIMVASTATIN [Concomitant]
  4. VITAMIN B1 TAB [Concomitant]
  5. AMBIEN CR [Concomitant]
  6. SERTRALINE [Concomitant]
  7. NAPROXEN [Concomitant]
  8. DOCUSATE (DOCUSATE) [Concomitant]

REACTIONS (2)
  - CATARACT [None]
  - DYSGEUSIA [None]
